FAERS Safety Report 12249238 (Version 2)
Quarter: 2016Q2

REPORT INFORMATION
  Report Type: Report from Study
  Country: DE (occurrence: DE)
  Receive Date: 20160408
  Receipt Date: 20160415
  Transmission Date: 20160815
  Serious: Yes (Death, Life-Threatening, Hospitalization)
  Sender: FDA-Public Use
  Company Number: DE-TEVA-649976GER

PATIENT
  Age: 58 Year
  Sex: Female
  Weight: 57 kg

DRUGS (7)
  1. PERTUZUMAB [Suspect]
     Active Substance: PERTUZUMAB
     Dosage: LAST DOSE PRIOR TO SAE: 17-MAR-2016
     Route: 042
     Dates: start: 20160204
  2. METOPROLOL. [Concomitant]
     Active Substance: METOPROLOL
     Dosage: 200 MILLIGRAM DAILY;
  3. METOPROLOL. [Concomitant]
     Active Substance: METOPROLOL
     Dosage: 190 MILLIGRAM DAILY;
     Dates: start: 20160324
  4. MYOCET [Suspect]
     Active Substance: DOXORUBICIN
     Indication: BREAST CANCER FEMALE
     Dosage: LAST DOSE PRIOT TO SAE: 17-MAR-2016
     Route: 042
     Dates: start: 20160204, end: 20160324
  5. JODID [Concomitant]
     Active Substance: IODINE
     Dosage: 100 MICROGRAM DAILY;
  6. TAXOL [Suspect]
     Active Substance: PACLITAXEL
     Indication: BREAST CANCER FEMALE
     Dosage: LAST DOSE PRIOR TO SAE: 17-MAR-2016
     Route: 042
     Dates: start: 20160204, end: 20160324
  7. TRASTUZUMAB [Suspect]
     Active Substance: TRASTUZUMAB
     Indication: BREAST CANCER FEMALE
     Dosage: LAST DOSE PRIOR TO SAE: 17-MAR-2016
     Route: 042
     Dates: start: 20160204

REACTIONS (7)
  - Cerebral artery embolism [Fatal]
  - Sepsis [Fatal]
  - Cardiac valve abscess [Fatal]
  - Pyelonephritis [Not Recovered/Not Resolved]
  - Interstitial lung disease [Not Recovered/Not Resolved]
  - Urinary tract infection [Not Recovered/Not Resolved]
  - Endocarditis [Fatal]

NARRATIVE: CASE EVENT DATE: 20160324
